FAERS Safety Report 9832796 (Version 1)
Quarter: 2014Q1

REPORT INFORMATION
  Report Type: Report from Study
  Country: KR (occurrence: KR)
  Receive Date: 20140121
  Receipt Date: 20140121
  Transmission Date: 20141002
  Serious: Yes (Hospitalization)
  Sender: FDA-Public Use
  Company Number: KR-GLAXOSMITHKLINE-B0952455A

PATIENT
  Age: 72 Year
  Sex: Male
  Weight: 53 kg

DRUGS (8)
  1. PAZOPANIB [Suspect]
     Indication: METASTATIC RENAL CELL CARCINOMA
     Dosage: 800MG PER DAY
     Route: 048
     Dates: start: 20130723
  2. AMLODIPINE [Concomitant]
     Indication: HYPERTENSION
     Dosage: 2.5MG PER DAY
     Route: 048
     Dates: start: 20130720, end: 20140111
  3. ULTRACET [Concomitant]
     Indication: PAIN
     Dates: start: 20130806
  4. MUCOSOL (BROMHEXINE HYDROCHLORIDE) [Concomitant]
     Indication: PRODUCTIVE COUGH
     Dosage: 8MG TWICE PER DAY
     Route: 048
     Dates: start: 20131208, end: 20131210
  5. UNKNOWN DRUG [Concomitant]
     Indication: DYSPEPSIA
     Dosage: 30MG THREE TIMES PER DAY
     Route: 048
     Dates: start: 20131210
  6. PANTOPRAZOLE [Concomitant]
     Indication: DYSPEPSIA
     Dosage: 20MG BEFORE MEALS
     Route: 048
     Dates: start: 20131210, end: 20140111
  7. CARBOCISTEINE [Concomitant]
     Indication: DYSPEPSIA
     Dosage: 500MG THREE TIMES PER DAY
     Route: 048
     Dates: start: 20131210, end: 20131223
  8. LEVOTHYROXIN [Concomitant]
     Indication: HYPERTHYROIDISM
     Dosage: .05MG PER DAY
     Route: 048
     Dates: start: 20131217, end: 20140111

REACTIONS (1)
  - Dyspnoea [Recovered/Resolved]
